APPROVED DRUG PRODUCT: BIDIL
Active Ingredient: HYDRALAZINE HYDROCHLORIDE; ISOSORBIDE DINITRATE
Strength: 37.5MG;20MG
Dosage Form/Route: TABLET;ORAL
Application: N020727 | Product #001 | TE Code: AB
Applicant: AZURITY PHARMACEUTICALS INC
Approved: Jun 23, 2005 | RLD: Yes | RS: Yes | Type: RX